FAERS Safety Report 5817515-1 (Version None)
Quarter: 2008Q3

REPORT INFORMATION
  Report Type: 
  Country: None (occurrence: None)
  Receive Date: 20080722
  Receipt Date: 20080716
  Transmission Date: 20090109
  Serious: Yes (Life-Threatening, Other)
  Sender: FDA-Public Use
  Company Number: DE-AMGEN-UK274511

PATIENT
  Sex: Female

DRUGS (5)
  1. NEULASTA [Suspect]
     Indication: CHEMOTHERAPY
     Route: 058
     Dates: start: 20080219, end: 20080219
  2. ENOXAPARIN SODIUM [Concomitant]
     Route: 058
     Dates: start: 20071101
  3. DEXAMETHASONE [Concomitant]
     Route: 048
     Dates: end: 20080218
  4. BENDAMUSTIN [Concomitant]
     Route: 042
     Dates: start: 20021218
  5. THALIDOMIDE [Concomitant]
     Route: 048
     Dates: start: 20071208, end: 20080222

REACTIONS (5)
  - ANAPHYLACTIC SHOCK [None]
  - DIZZINESS [None]
  - DYSPNOEA [None]
  - LOSS OF CONSCIOUSNESS [None]
  - URINARY INCONTINENCE [None]
